FAERS Safety Report 4471631-8 (Version None)
Quarter: 2004Q4

REPORT INFORMATION
  Report Type: 
  Country: None (occurrence: None)
  Receive Date: 20041012
  Receipt Date: 20040930
  Transmission Date: 20050328
  Serious: Yes (Other)
  Sender: FDA-Public Use
  Company Number: US-JNJFOC-20040910221

PATIENT
  Age: 53 Year
  Sex: Female
  Weight: 89.7 kg

DRUGS (11)
  1. NATRECOR [Suspect]
     Route: 042
  2. NATRECOR [Suspect]
     Indication: DRUG USE FOR UNKNOWN INDICATION
     Dosage: BOLUS DOSE 2 UG/KG
     Route: 042
  3. COUMADIN [Suspect]
  4. TRICOR [Concomitant]
  5. LASIX [Concomitant]
  6. SPIRONOLACTONE [Concomitant]
  7. ULTRACET [Concomitant]
     Dosage: PRN
  8. K-DUR 10 [Concomitant]
  9. DIGITEX [Concomitant]
  10. STARLEX [Concomitant]
  11. ESTROGEN PATCH [Concomitant]

REACTIONS (13)
  - BLOOD CREATININE INCREASED [None]
  - BLOOD POTASSIUM DECREASED [None]
  - BLOOD UREA INCREASED [None]
  - CONSTIPATION [None]
  - COUGH [None]
  - DRUG INTERACTION [None]
  - DYSPNOEA EXERTIONAL [None]
  - INTERNATIONAL NORMALISED RATIO INCREASED [None]
  - LIP PAIN [None]
  - MUSCLE CRAMP [None]
  - OEDEMA PERIPHERAL [None]
  - RASH PRURITIC [None]
  - WEIGHT INCREASED [None]
